FAERS Safety Report 7595746-0 (Version None)
Quarter: 2011Q3

REPORT INFORMATION
  Report Type: 
  Country: None (occurrence: None)
  Receive Date: 20110707
  Receipt Date: 20110704
  Transmission Date: 20111222
  Serious: Yes (Death, Hospitalization)
  Sender: FDA-Public Use
  Company Number: GB-PFIZER INC-2011149680

PATIENT
  Sex: Female

DRUGS (1)
  1. SUTENT [Suspect]
     Indication: RENAL CANCER METASTATIC
     Route: 048

REACTIONS (5)
  - DYSPNOEA [None]
  - CONFUSIONAL STATE [None]
  - OEDEMA [None]
  - DEATH [None]
  - SOMNOLENCE [None]
